FAERS Safety Report 15673714 (Version 2)
Quarter: 2019Q1

REPORT INFORMATION
  Report Type: Spontaneous
  Country: US (occurrence: US)
  Receive Date: 20181129
  Receipt Date: 20190109
  Transmission Date: 20190417
  Serious: No
  Sender: FDA-Public Use
  Company Number: US-PFIZER INC-2018239081

PATIENT
  Age: 50 Year
  Sex: Female
  Weight: 104 kg

DRUGS (23)
  1. HYDROCHLOROTHIAZIDE. [Concomitant]
     Active Substance: HYDROCHLOROTHIAZIDE
  2. PROCHLORPERAZINE. [Concomitant]
     Active Substance: PROCHLORPERAZINE
  3. DOCQLACE [Concomitant]
     Active Substance: DOCUSATE SODIUM
  4. DOCETAXEL. [Suspect]
     Active Substance: DOCETAXEL
     Indication: LEIOMYOSARCOMA
     Dosage: 200 MG, EVERY 3 WEEKS
     Dates: start: 20140114, end: 20140620
  5. GEMZAR [Concomitant]
     Active Substance: GEMCITABINE HYDROCHLORIDE
     Indication: LEIOMYOSARCOMA
     Dosage: UNK
  6. VYTORIN [Concomitant]
     Active Substance: EZETIMIBE\SIMVASTATIN
  7. IBUPROFEN. [Concomitant]
     Active Substance: IBUPROFEN
  8. CLINDAMYCIN. [Concomitant]
     Active Substance: CLINDAMYCIN
  9. ACETAMINOPHEN;HYDROCODONE [Concomitant]
     Active Substance: ACETAMINOPHEN\HYDROCODONE
  10. MEDROXYPROGESTERONE [Concomitant]
     Active Substance: MEDROXYPROGESTERONE
  11. METRONIDAZOLE. [Concomitant]
     Active Substance: METRONIDAZOLE
  12. NEULASTA [Concomitant]
     Active Substance: PEGFILGRASTIM
  13. DIPHENOXYLATE/ATROPINE [Concomitant]
     Active Substance: ATROPINE\DIPHENOXYLATE
  14. FLUCONAZOLE. [Concomitant]
     Active Substance: FLUCONAZOLE
  15. RANITIDINE. [Concomitant]
     Active Substance: RANITIDINE
  16. PREDNISONE. [Concomitant]
     Active Substance: PREDNISONE
  17. ESTRACE [Concomitant]
     Active Substance: ESTRADIOL
  18. LOPERAMIDE [Concomitant]
     Active Substance: LOPERAMIDE
  19. LEVAQUIN [Concomitant]
     Active Substance: LEVOFLOXACIN
  20. ANTIPYRINE + BENZOCAINE [Concomitant]
  21. DEXAMETHASONE. [Concomitant]
     Active Substance: DEXAMETHASONE
  22. ONDANSETRON [Concomitant]
     Active Substance: ONDANSETRON
  23. CEPHALEXINE [Concomitant]
     Active Substance: CEPHALEXIN

REACTIONS (3)
  - Madarosis [Unknown]
  - Alopecia [Recovered/Resolved]
  - Hair texture abnormal [Unknown]

NARRATIVE: CASE EVENT DATE: 201401
